FAERS Safety Report 10235693 (Version 1)
Quarter: 2014Q2

REPORT INFORMATION
  Report Type: Spontaneous
  Country: US (occurrence: US)
  Receive Date: 20140613
  Receipt Date: 20140613
  Transmission Date: 20141212
  Serious: No
  Sender: FDA-Public Use
  Company Number: US-BAYER-2014-087784

PATIENT
  Age: 78 Year
  Sex: Female

DRUGS (1)
  1. GADAVIST [Suspect]
     Indication: NUCLEAR MAGNETIC RESONANCE IMAGING SPINAL NORMAL
     Dosage: 0.1 ML/KG, ONCE
     Route: 042
     Dates: start: 20140609, end: 20140609

REACTIONS (5)
  - Cough [None]
  - Face oedema [None]
  - Erythema [None]
  - Injection site erythema [None]
  - Rash erythematous [None]
